FAERS Safety Report 18072755 (Version 4)
Quarter: 2020Q3

REPORT INFORMATION
  Report Type: Spontaneous
  Country: US (occurrence: US)
  Receive Date: 20200727
  Receipt Date: 20200916
  Transmission Date: 20201103
  Serious: No
  Sender: FDA-Public Use
  Company Number: US-SA-2020SA192174

PATIENT

DRUGS (2)
  1. LANTUS [Suspect]
     Active Substance: INSULIN GLARGINE
     Dosage: 8 IU, QD
     Route: 065
     Dates: start: 20200708
  2. LANTUS [Suspect]
     Active Substance: INSULIN GLARGINE
     Dosage: 22 IU, QD
     Route: 065

REACTIONS (2)
  - Intentional product use issue [Unknown]
  - Blood glucose increased [Unknown]

NARRATIVE: CASE EVENT DATE: 202007
